FAERS Safety Report 9223897 (Version 1)
Quarter: 2013Q2

REPORT INFORMATION
  Report Type: Spontaneous
  Country: DE (occurrence: DE)
  Receive Date: 20130411
  Receipt Date: 20130411
  Transmission Date: 20140414
  Serious: Yes (Hospitalization)
  Sender: FDA-Public Use
  Company Number: DE-BIOGENIDEC-2013BI031851

PATIENT
  Age: 35 Year
  Sex: Female
  Weight: 73 kg

DRUGS (1)
  1. AVONEX [Suspect]
     Indication: MULTIPLE SCLEROSIS
     Route: 030
     Dates: start: 20111126

REACTIONS (2)
  - Hemiparesis [Recovered/Resolved]
  - Paraesthesia [Recovered/Resolved]
